FAERS Safety Report 23285299 (Version 3)
Quarter: 2024Q1

REPORT INFORMATION
  Report Type: Report from Study
  Country: TW (occurrence: None)
  Receive Date: 20231211
  Receipt Date: 20240109
  Transmission Date: 20240410
  Serious: Yes (Hospitalization)
  Sender: FDA-Public Use
  Company Number: 2023A277911

PATIENT
  Sex: Female

DRUGS (4)
  1. IMFINZI [Suspect]
     Active Substance: DURVALUMAB
     Dosage: 480.0MG UNKNOWN
     Route: 041
     Dates: start: 20211122, end: 20211213
  2. IMFINZI [Suspect]
     Active Substance: DURVALUMAB
     Dosage: 720.0MG UNKNOWN
     Route: 041
     Dates: start: 20220122, end: 20221223
  3. IMFINZI [Suspect]
     Active Substance: DURVALUMAB
     Dosage: 240.0MG UNKNOWN
     Route: 041
     Dates: start: 20221112
  4. IMFINZI [Suspect]
     Active Substance: DURVALUMAB
     Dosage: 960.0MG UNKNOWN
     Route: 041
     Dates: start: 20230111

REACTIONS (5)
  - Metastases to central nervous system [Unknown]
  - Brain oedema [Unknown]
  - Language disorder [Unknown]
  - Hemiplegia [Unknown]
  - Fatigue [Unknown]
